FAERS Safety Report 26083569 (Version 1)
Quarter: 2025Q4

REPORT INFORMATION
  Report Type: Spontaneous
  Country: EU (occurrence: EU)
  Receive Date: 20251124
  Receipt Date: 20251124
  Transmission Date: 20260118
  Serious: Yes (Other)
  Sender: MERCK SHARP & DOHME LLC
  Company Number: None

PATIENT
  Age: 64 Year
  Sex: Female
  Weight: 90 kg

DRUGS (1)
  1. PEMBROLIZUMAB [Suspect]
     Active Substance: PEMBROLIZUMAB
     Indication: Malignant melanoma
     Dosage: 2MG/KG EVERY 21 DAYS
     Route: 042
     Dates: start: 20210520, end: 20220207

REACTIONS (2)
  - Colitis ulcerative [Unknown]
  - Immune-mediated myocarditis [Unknown]

NARRATIVE: CASE EVENT DATE: 20220302
